FAERS Safety Report 20024559 (Version 1)
Quarter: 2021Q4

REPORT INFORMATION
  Report Type: Spontaneous
  Country: PT (occurrence: None)
  Receive Date: 20211102
  Receipt Date: 20211102
  Transmission Date: 20220303
  Serious: Yes (Other)
  Sender: FDA-Public Use
  Company Number: PT-Hikma Pharmaceuticals USA Inc.-PT-H14001-21-04606

PATIENT
  Age: 32 Year
  Sex: Female
  Weight: 73 kg

DRUGS (4)
  1. MIDAZOLAM [Suspect]
     Active Substance: MIDAZOLAM
     Indication: Sedation
     Route: 065
  2. FENTANYL [Suspect]
     Active Substance: FENTANYL
     Indication: Sedation
     Route: 065
  3. C1 CONCENTRATE [Concomitant]
     Indication: Product used for unknown indication
     Dosage: 1000 UI
     Route: 065
  4. DANAZOL [Concomitant]
     Active Substance: DANAZOL
     Indication: Hereditary angioedema with C1 esterase inhibitor deficiency
     Dosage: UNKNOWN
     Route: 065

REACTIONS (3)
  - Rash [Unknown]
  - Flushing [Unknown]
  - Stridor [Unknown]
